FAERS Safety Report 6444533-5 (Version None)
Quarter: 2009Q4

REPORT INFORMATION
  Report Type: 
  Country: None (occurrence: None)
  Receive Date: 20091117
  Receipt Date: 20091117
  Transmission Date: 20100525
  Serious: Yes (Death)
  Sender: FDA-Public Use
  Company Number: None

PATIENT
  Sex: Male
  Weight: 84.8 kg

DRUGS (22)
  1. MUROMONAB 5MG ORTHO BIOTECH [Suspect]
     Indication: PROPHYLAXIS AGAINST TRANSPLANT REJECTION
     Dosage: 5MG DAILY IV BOLUS
     Route: 040
     Dates: start: 20090909, end: 20090909
  2. ACYCLOVIR [Concomitant]
  3. ASPIRIN [Concomitant]
  4. CELLCEPT [Concomitant]
  5. DAPSONE [Concomitant]
  6. EPOETIN ALFA [Concomitant]
  7. FUROSEMIDE [Concomitant]
  8. NOVOLOG MIX 70/30 [Concomitant]
  9. METOPROLOL SUCCINATE [Concomitant]
  10. MINOXIDIL [Concomitant]
  11. SIMAVASTATIN [Concomitant]
  12. SIROLIMUS [Concomitant]
  13. SODIUM BICARBONATE IN PLASTIC CONTAINER [Concomitant]
  14. TAMSULOSIN [Concomitant]
  15. TRAMADOL [Concomitant]
  16. WARFARIN SODIUM [Concomitant]
  17. FAMOTIDINE [Concomitant]
  18. PREDNISONE [Concomitant]
  19. ACETAMINOPHEN [Concomitant]
  20. DIPHENHYDRAMINE HCL [Concomitant]
  21. SODIUM CHLORIDE [Concomitant]
  22. DEXTROSE [Concomitant]

REACTIONS (4)
  - CARDIO-RESPIRATORY ARREST [None]
  - ELECTROMECHANICAL DISSOCIATION [None]
  - OXYGEN SATURATION DECREASED [None]
  - PULMONARY OEDEMA [None]
